FAERS Safety Report 9179267 (Version 2)
Quarter: 2013Q2

REPORT INFORMATION
  Report Type: Spontaneous
  Country: DE (occurrence: DE)
  Receive Date: 20130321
  Receipt Date: 20130403
  Transmission Date: 20140414
  Serious: Yes (Hospitalization)
  Sender: FDA-Public Use
  Company Number: DE-GLAXOSMITHKLINE-D0079191A

PATIENT
  Sex: Male

DRUGS (4)
  1. DUODART [Suspect]
     Route: 065
  2. ZYLORIC [Suspect]
     Route: 065
  3. DICLOPHENAC [Suspect]
     Route: 065
  4. CIPROBAY [Suspect]
     Route: 065

REACTIONS (2)
  - Retinal detachment [Unknown]
  - Drug interaction [Unknown]
